FAERS Safety Report 4699320-5 (Version None)
Quarter: 2005Q2

REPORT INFORMATION
  Report Type: 
  Country: None (occurrence: None)
  Receive Date: 20050624
  Receipt Date: 20050519
  Transmission Date: 20051028
  Serious: Yes (Other)
  Sender: FDA-Public Use
  Company Number: JP-GLAXOSMITHKLINE-B0381901A

PATIENT
  Age: 74 Year
  Sex: Female
  Weight: 36 kg

DRUGS (11)
  1. MODACIN [Suspect]
     Indication: SEPSIS
     Dosage: 1G TWICE PER DAY
     Route: 042
     Dates: start: 20050519, end: 20050519
  2. THYRADIN S [Concomitant]
     Indication: HYPOTHYROIDISM
     Dosage: 50MG PER DAY
     Route: 048
     Dates: start: 20000704
  3. ASPIRIN [Concomitant]
     Indication: ANGINA PECTORIS
     Dosage: 100MG PER DAY
     Route: 048
     Dates: start: 19970901
  4. SIGMART [Concomitant]
     Indication: ANGINA PECTORIS
     Dosage: 15MG PER DAY
     Route: 048
     Dates: start: 20000704
  5. CIBENOL [Concomitant]
     Indication: ATRIAL FIBRILLATION
     Dosage: 200MG PER DAY
     Route: 048
     Dates: start: 20040106
  6. GASTER D [Concomitant]
     Indication: GASTRITIS
     Dosage: 40MG PER DAY
     Route: 048
     Dates: start: 20000704
  7. MUCOSTA [Concomitant]
     Indication: GASTRITIS
     Dosage: 300MG PER DAY
     Route: 048
     Dates: start: 20000704
  8. ALLELOCK [Concomitant]
     Indication: DERMATITIS
     Dosage: 10MG PER DAY
     Route: 048
     Dates: start: 20050217
  9. ATARAX [Concomitant]
     Indication: DERMATITIS
     Dosage: 25MG PER DAY
     Route: 048
  10. PREDONINE [Concomitant]
     Indication: RHEUMATOID ARTHRITIS
     Dosage: 5MG PER DAY
     Route: 048
     Dates: start: 20050217
  11. ORCL [Concomitant]
     Dosage: 200MG PER DAY
     Route: 048
     Dates: start: 20050217

REACTIONS (5)
  - BLOOD PRESSURE DECREASED [None]
  - CHILLS [None]
  - DEPRESSED LEVEL OF CONSCIOUSNESS [None]
  - THIRST [None]
  - VOMITING [None]
